FAERS Safety Report 14252130 (Version 1)
Quarter: 2017Q4

REPORT INFORMATION
  Report Type: Spontaneous
  Country: AU (occurrence: AU)
  Receive Date: 20171205
  Receipt Date: 20171205
  Transmission Date: 20180321
  Serious: Yes (Other)
  Sender: FDA-Public Use
  Company Number: AU-ELI_LILLY_AND_COMPANY-AU201712000665

PATIENT
  Age: 86 Year
  Sex: Female

DRUGS (8)
  1. SPREN [Concomitant]
  2. COVERSYL                           /00790702/ [Concomitant]
     Active Substance: PERINDOPRIL
  3. SIMVASTATIN. [Concomitant]
     Active Substance: SIMVASTATIN
  4. LASIX [Concomitant]
     Active Substance: FUROSEMIDE
  5. BICARBON                           /00049401/ [Concomitant]
     Indication: BLOOD POTASSIUM INCREASED
  6. HUMULIN N [Suspect]
     Active Substance: INSULIN HUMAN
     Indication: TYPE 2 DIABETES MELLITUS
     Dosage: 56 U, EACH MORNING
     Route: 058
     Dates: start: 1997
  7. HUMULIN N [Suspect]
     Active Substance: INSULIN HUMAN
     Dosage: 46 U, EACH EVENING
     Route: 058
     Dates: start: 1997
  8. ZANIDIP [Concomitant]
     Active Substance: LERCANIDIPINE HYDROCHLORIDE

REACTIONS (2)
  - Incorrect dose administered [Unknown]
  - Blindness [Unknown]
